FAERS Safety Report 21895058 (Version 1)
Quarter: 2023Q1

REPORT INFORMATION
  Report Type: Spontaneous
  Country: CZ (occurrence: CZ)
  Receive Date: 20230122
  Receipt Date: 20230122
  Transmission Date: 20230417
  Serious: Yes (Other)
  Sender: FDA-Public Use
  Company Number: CZ-MICRO LABS LIMITED-ML2023-00321

PATIENT
  Age: 7 Year
  Sex: Male

DRUGS (3)
  1. DORZOLAMIDE [Suspect]
     Active Substance: DORZOLAMIDE
     Indication: Retinoschisis congenital
     Dosage: DORZOLAMIDE, 2% DROPS THREE TIMES A DAY
  2. DORZOLAMIDE [Suspect]
     Active Substance: DORZOLAMIDE
     Dosage: DORZOLAMIDE, 2% DROPS TWICE A DAY REBOUND OCCURRED AFTER RETURNED TO THREE TIMES A DAY
  3. DORZOLAMIDE [Suspect]
     Active Substance: DORZOLAMIDE
     Dosage: DORZOLAMIDE, 2% DROPS TWICE A DAY REBOUND OCCURRED AFTER RETURNED TO THREE TIMES A DAY

REACTIONS (1)
  - Retinoschisis congenital [Recovering/Resolving]
